FAERS Safety Report 21637050 (Version 1)
Quarter: 2022Q4

REPORT INFORMATION
  Report Type: Spontaneous
  Country: CN (occurrence: None)
  Receive Date: 20221124
  Receipt Date: 20221124
  Transmission Date: 20230113
  Serious: Yes (Other)
  Sender: FDA-Public Use
  Company Number: CN-ROCHE-3223348

PATIENT
  Age: 52 Year
  Sex: Female

DRUGS (3)
  1. ALECENSA [Suspect]
     Active Substance: ALECTINIB HYDROCHLORIDE
     Indication: Lung adenocarcinoma
     Route: 048
     Dates: start: 20201218
  2. PEMETREXED [Concomitant]
     Active Substance: PEMETREXED
     Indication: Lung adenocarcinoma
     Dosage: DAY 1
     Route: 041
     Dates: start: 20201205
  3. CISPLATIN [Concomitant]
     Active Substance: CISPLATIN
     Indication: Lung adenocarcinoma
     Dosage: DAY 1 TO DAY 3
     Route: 041
     Dates: start: 20201205

REACTIONS (3)
  - Sinus bradycardia [Unknown]
  - Oedema [Unknown]
  - Cardiotoxicity [Unknown]
